FAERS Safety Report 17767285 (Version 1)
Quarter: 2020Q2

REPORT INFORMATION
  Report Type: Report from Study
  Country: UA (occurrence: UA)
  Receive Date: 20200511
  Receipt Date: 20200511
  Transmission Date: 20200714
  Serious: Yes (Hospitalization, Other)
  Sender: FDA-Public Use
  Company Number: UA-AMGEN-UKRCT2020073285

PATIENT
  Age: 49 Year
  Sex: Female

DRUGS (12)
  1. DARBEPOETIN ALFA [Suspect]
     Active Substance: DARBEPOETIN ALFA
     Dosage: 5 MICROGRAM, Q2WK
     Route: 058
     Dates: start: 20191008, end: 20200112
  2. DARBEPOETIN ALFA [Suspect]
     Active Substance: DARBEPOETIN ALFA
     Dosage: 7 MICROGRAM, Q2WK
     Route: 058
     Dates: start: 20200113, end: 20200126
  3. FOLIC ACID. [Concomitant]
     Active Substance: FOLIC ACID
     Dosage: UNK
     Dates: start: 20181217
  4. DARBEPOETIN ALFA [Suspect]
     Active Substance: DARBEPOETIN ALFA
     Indication: ANAEMIA
     Dosage: 40 MICROGRAM, Q2WK
     Route: 058
     Dates: start: 20190212, end: 20190311
  5. DARBEPOETIN ALFA [Suspect]
     Active Substance: DARBEPOETIN ALFA
     Dosage: 10 MICROGRAM, Q2WK
     Route: 058
     Dates: start: 20200127, end: 20200210
  6. DARBEPOETIN ALFA [Suspect]
     Active Substance: DARBEPOETIN ALFA
     Dosage: 30 MICROGRAM, Q2WK
     Route: 058
     Dates: start: 20190312, end: 20190324
  7. DARBEPOETIN ALFA [Suspect]
     Active Substance: DARBEPOETIN ALFA
     Dosage: 15 MICROGRAM, Q2WK
     Route: 058
     Dates: start: 20190507, end: 20190602
  8. DARBEPOETIN ALFA [Suspect]
     Active Substance: DARBEPOETIN ALFA
     Dosage: 7 MICROGRAM, Q2WK
     Route: 058
     Dates: start: 20190701, end: 20191007
  9. DARBEPOETIN ALFA [Suspect]
     Active Substance: DARBEPOETIN ALFA
     Dosage: 10 MICROGRAM, Q2WK
     Route: 058
     Dates: start: 20190603, end: 20190630
  10. BERLIPRIL [Concomitant]
     Active Substance: ENALAPRIL MALEATE
     Dosage: UNK
     Dates: start: 20181217
  11. DARBEPOETIN ALFA [Suspect]
     Active Substance: DARBEPOETIN ALFA
     Dosage: 20 MICROGRAM, Q2WK
     Route: 058
     Dates: start: 20190409, end: 20190506
  12. DARBEPOETIN ALFA [Suspect]
     Active Substance: DARBEPOETIN ALFA
     Dosage: 15 MICROGRAM, Q2WK
     Route: 058
     Dates: start: 20200211, end: 20200227

REACTIONS (3)
  - Blood alkaline phosphatase increased [Unknown]
  - Alanine aminotransferase increased [Unknown]
  - End stage renal disease [Recovered/Resolved with Sequelae]

NARRATIVE: CASE EVENT DATE: 20191227
